FAERS Safety Report 6568395-0 (Version None)
Quarter: 2010Q1

REPORT INFORMATION
  Report Type: 
  Country: None (occurrence: None)
  Receive Date: 20100128
  Receipt Date: 20100125
  Transmission Date: 20100710
  Serious: Yes (Disabling)
  Sender: FDA-Public Use
  Company Number: OSCN-NO-0910S-0476

PATIENT
  Age: 43 Year
  Sex: Female
  Weight: 100 kg

DRUGS (2)
  1. OMNISCAN [Suspect]
     Indication: OSTEOMYELITIS
     Dosage: NR, SINGLE DOSE, IV
     Route: 042
     Dates: start: 20031128, end: 20031128
  2. MAGNEVIST [Suspect]
     Indication: OSTEOMYELITIS
     Dosage: NR, SINGLE DOSE, IV
     Route: 042
     Dates: start: 20031128, end: 20031128

REACTIONS (3)
  - NEPHROGENIC SYSTEMIC FIBROSIS [None]
  - PSEUDOPORPHYRIA [None]
  - PYODERMA GANGRENOSUM [None]
